FAERS Safety Report 19087272 (Version 1)
Quarter: 2021Q2

REPORT INFORMATION
  Report Type: Spontaneous
  Country: US (occurrence: US)
  Receive Date: 20210402
  Receipt Date: 20210402
  Transmission Date: 20210717
  Serious: Yes (Hospitalization)
  Sender: FDA-Public Use
  Company Number: None

PATIENT
  Age: 81 Year
  Sex: Female
  Weight: 67.8 kg

DRUGS (2)
  1. BAMLANIVIMAB. [Concomitant]
     Active Substance: BAMLANIVIMAB
     Dates: start: 20210205, end: 20210205
  2. BAMLANIVIMAB. [Suspect]
     Active Substance: BAMLANIVIMAB
     Indication: COVID-19
     Dosage: ?          OTHER FREQUENCY:ONCE;?
     Route: 017

REACTIONS (10)
  - Infusion related reaction [None]
  - Anaphylactic reaction [None]
  - Transfusion reaction [None]
  - Transfusion-related acute lung injury [None]
  - Vomiting [None]
  - Urticaria [None]
  - Haemoglobin decreased [None]
  - COVID-19 pneumonia [None]
  - Hypersensitivity [None]
  - Hyperglycaemia [None]

NARRATIVE: CASE EVENT DATE: 20210205
